FAERS Safety Report 22539552 (Version 1)
Quarter: 2023Q2

REPORT INFORMATION
  Report Type: Spontaneous
  Country: US (occurrence: None)
  Receive Date: 20230609
  Receipt Date: 20230609
  Transmission Date: 20230722
  Serious: Yes (Hospitalization)
  Sender: FDA-Public Use
  Company Number: US-ROCHE-3363162

PATIENT
  Age: 58 Year
  Sex: Male
  Weight: 78.996 kg

DRUGS (5)
  1. XOLAIR [Suspect]
     Active Substance: OMALIZUMAB
     Indication: Asthma
     Route: 058
  2. PREDNISONE [Concomitant]
     Active Substance: PREDNISONE
     Route: 048
  3. ENTYVIO [Concomitant]
     Active Substance: VEDOLIZUMAB
  4. ASPIRIN [Concomitant]
     Active Substance: ASPIRIN
     Indication: Anticoagulant therapy
  5. LEVALBUTEROL [Concomitant]
     Active Substance: LEVALBUTEROL
     Indication: Asthma
     Route: 055

REACTIONS (32)
  - Myocardial infarction [Recovered/Resolved]
  - Thrombosis [Recovered/Resolved]
  - Atrioventricular block [Not Recovered/Not Resolved]
  - Cardiac disorder [Recovered/Resolved]
  - Dyspnoea [Recovered/Resolved]
  - Asthma [Recovered/Resolved]
  - Chest pain [Recovered/Resolved]
  - Wheezing [Recovered/Resolved]
  - Arterial rupture [Recovered/Resolved]
  - Haemorrhage [Recovered/Resolved]
  - Bruxism [Recovered/Resolved]
  - Chills [Recovered/Resolved]
  - COVID-19 [Recovered/Resolved]
  - Hyperhidrosis [Recovered/Resolved]
  - Tooth fracture [Recovered/Resolved]
  - Sensory loss [Recovered/Resolved]
  - Colopathy [Recovered/Resolved]
  - Pain [Recovered/Resolved]
  - Diarrhoea [Recovered/Resolved]
  - Pulmonary pain [Recovered/Resolved]
  - Fatigue [Recovered/Resolved]
  - Asthenia [Recovered/Resolved]
  - Pneumonia [Recovered/Resolved]
  - Drug hypersensitivity [Not Recovered/Not Resolved]
  - Clostridium difficile infection [Recovered/Resolved]
  - Sleep apnoea syndrome [Not Recovered/Not Resolved]
  - Chronic obstructive pulmonary disease [Not Recovered/Not Resolved]
  - Weight decreased [Recovered/Resolved]
  - Spinal fracture [Recovered/Resolved]
  - Arthritis [Not Recovered/Not Resolved]
  - Neck injury [Not Recovered/Not Resolved]
  - Back injury [Not Recovered/Not Resolved]

NARRATIVE: CASE EVENT DATE: 20160101
